FAERS Safety Report 7414834-2 (Version None)
Quarter: 2011Q2

REPORT INFORMATION
  Report Type: 
  Country: None (occurrence: None)
  Receive Date: 20110414
  Receipt Date: 20110411
  Transmission Date: 20111010
  Serious: Yes (Other)
  Sender: FDA-Public Use
  Company Number: US-PFIZER INC-2011011027

PATIENT
  Sex: Female

DRUGS (7)
  1. CHANTIX [Suspect]
     Dosage: ONE MONTH
     Dates: start: 20090101
  2. ZOLOFT [Concomitant]
  3. CHANTIX [Suspect]
     Indication: SMOKING CESSATION THERAPY
     Dosage: ONE MONTH
     Dates: start: 20081001
  4. CHANTIX [Suspect]
     Dosage: ONE MONTH
     Dates: start: 20091001
  5. CHANTIX [Suspect]
     Dosage: SEVERAL WEEKS
     Dates: start: 20100301
  6. ZOLOFT [Concomitant]
     Indication: DEPRESSION
     Dosage: UNK
     Dates: start: 20070101, end: 20090101
  7. XANAX [Concomitant]
     Indication: ANXIETY
     Dosage: UNK
     Dates: start: 20070101, end: 20090101

REACTIONS (6)
  - ANXIETY [None]
  - ANGER [None]
  - MAJOR DEPRESSION [None]
  - AGGRESSION [None]
  - SUICIDE ATTEMPT [None]
  - INTENTIONAL OVERDOSE [None]
